FAERS Safety Report 14179145 (Version 1)
Quarter: 2017Q4

REPORT INFORMATION
  Report Type: Spontaneous
  Country: US (occurrence: US)
  Receive Date: 20171110
  Receipt Date: 20171110
  Transmission Date: 20180321
  Serious: Yes (Hospitalization)
  Sender: FDA-Public Use
  Company Number: US-LPDUSPRD-20171524

PATIENT
  Age: 8 Year
  Sex: Male

DRUGS (10)
  1. DEXAMETHASONE SODIUM PHOSPHATE INJECTION, USP (4901-25) [Suspect]
     Active Substance: DEXAMETHASONE SODIUM PHOSPHATE
     Dosage: 0.12 MG/KG
     Route: 042
  2. GLYCOPYRROLATE INJECTION, USP (4601-25) [Suspect]
     Active Substance: GLYCOPYRROLATE
     Dosage: 8 MCG/KG
     Route: 042
  3. NEOSTIGMINE METHYLSULFATE INJECTION, USP (0033-10) [Suspect]
     Active Substance: NEOSTIGMINE METHYLSULFATE
     Dosage: 0.04 MG/KG
     Route: 042
  4. MIDAZOLAM [Suspect]
     Active Substance: MIDAZOLAM HYDROCHLORIDE
     Dosage: 0.04 MG/KG
     Route: 042
  5. PROPOFOL. [Suspect]
     Active Substance: PROPOFOL
     Dosage: 3.8 MG/KG
     Route: 042
  6. VANCOMYCIN [Concomitant]
     Active Substance: VANCOMYCIN
     Dosage: 12 MG/KG
     Route: 042
  7. FENTANYL. [Suspect]
     Active Substance: FENTANYL
     Dosage: 3 MCG/KG
     Route: 042
  8. NORMAL SALINE [Suspect]
     Active Substance: SODIUM CHLORIDE
     Dosage: 16 ML/KG
     Route: 042
  9. DESFLURANE. [Suspect]
     Active Substance: DESFLURANE
     Dosage: UNKNOWN
     Route: 065
  10. ROCURONIUM [Suspect]
     Active Substance: ROCURONIUM BROMIDE
     Dosage: 1.2 MG/KG
     Route: 042

REACTIONS (1)
  - Metabolic acidosis [Recovered/Resolved]
